FAERS Safety Report 9993056 (Version 1)
Quarter: 2014Q1

REPORT INFORMATION
  Report Type: Report from Study
  Country: US (occurrence: US)
  Receive Date: 20140310
  Receipt Date: 20140310
  Transmission Date: 20141002
  Serious: No
  Sender: FDA-Public Use
  Company Number: US-ABBVIE-13P-163-1179175-00

PATIENT
  Age: 28 Year
  Sex: Female

DRUGS (6)
  1. LUPRON DEPOT [Suspect]
     Indication: ENDOMETRIOSIS
     Dates: start: 201212
  2. LUPRON DEPOT [Suspect]
     Indication: UTERINE LEIOMYOMA
  3. BIOTIN [Concomitant]
     Indication: VITAMIN SUPPLEMENTATION
     Route: 048
  4. GLUCOSAMINE [Concomitant]
     Indication: VITAMIN SUPPLEMENTATION
     Route: 048
  5. VITAMIN B-COMPLEX [Concomitant]
     Indication: VITAMIN SUPPLEMENTATION
     Route: 048
  6. NORETHINDRONE ACETATE [Concomitant]
     Indication: MEMORY IMPAIRMENT
     Route: 048
     Dates: start: 2013

REACTIONS (3)
  - Poor quality sleep [Not Recovered/Not Resolved]
  - Hot flush [Not Recovered/Not Resolved]
  - Memory impairment [Not Recovered/Not Resolved]
